FAERS Safety Report 5157037-7 (Version None)
Quarter: 2006Q4

REPORT INFORMATION
  Report Type: 
  Country: None (occurrence: None)
  Receive Date: 20061127
  Receipt Date: 20061114
  Transmission Date: 20070319
  Serious: Yes (Death, Other)
  Sender: FDA-Public Use
  Company Number: DE-JNJFOC-20061006520

PATIENT
  Sex: Male
  Weight: 87 kg

DRUGS (5)
  1. RISPERDAL [Suspect]
     Indication: AGGRESSION
     Route: 048
  2. RISPERDAL [Suspect]
     Indication: RESTLESSNESS
     Route: 048
  3. SULPIRID [Concomitant]
     Route: 048
  4. ASPIRIN [Concomitant]
     Route: 048
  5. METOPROLOL [Concomitant]
     Route: 048

REACTIONS (12)
  - ANAEMIA [None]
  - CARDIAC FAILURE [None]
  - CARDIOMEGALY [None]
  - CEREBRAL INFARCTION [None]
  - CHEYNE-STOKES RESPIRATION [None]
  - HYPOKALAEMIA [None]
  - PLEURAL EFFUSION [None]
  - PULMONARY CONGESTION [None]
  - PULMONARY OEDEMA [None]
  - RENAL FAILURE [None]
  - RESPIRATORY DEPRESSION [None]
  - RESPIRATORY FAILURE [None]
